FAERS Safety Report 6605073-3 (Version None)
Quarter: 2010Q1

REPORT INFORMATION
  Report Type: 
  Country: None (occurrence: None)
  Receive Date: 20100226
  Receipt Date: 20100222
  Transmission Date: 20100710
  Serious: Yes (Hospitalization, Other)
  Sender: FDA-Public Use
  Company Number: US-RB-023805-09

PATIENT
  Age: 50 Year
  Sex: Female

DRUGS (7)
  1. SUBUTEX [Suspect]
     Route: 060
     Dates: start: 20090101
  2. SUBUTEX [Suspect]
     Indication: PAIN
     Route: 060
     Dates: end: 20090101
  3. SUBUTEX [Suspect]
     Route: 060
  4. SUBOXONE [Suspect]
     Dosage: DOSING INFORMATION UNKNOWN
     Route: 065
  5. LIBRIUM [Suspect]
     Indication: DRUG USE FOR UNKNOWN INDICATION
     Dosage: DOSING DETAILS UNKNOWN
     Route: 065
  6. CYMBALTA [Suspect]
     Indication: DEPRESSION
     Dosage: DOSING INFORMATION UNKNOWN
     Route: 065
     Dates: end: 20091218
  7. REGLAN [Suspect]
     Indication: DRUG USE FOR UNKNOWN INDICATION

REACTIONS (28)
  - ABDOMINAL DISTENSION [None]
  - ABDOMINAL PAIN UPPER [None]
  - ABNORMAL BEHAVIOUR [None]
  - BACK PAIN [None]
  - BALANCE DISORDER [None]
  - CHEST PAIN [None]
  - DYSARTHRIA [None]
  - EYE PAIN [None]
  - FALL [None]
  - GAIT DISTURBANCE [None]
  - GASTROINTESTINAL OBSTRUCTION [None]
  - GENERALISED OEDEMA [None]
  - HEADACHE [None]
  - HYPERSOMNIA [None]
  - HYPOAESTHESIA FACIAL [None]
  - INFLUENZA LIKE ILLNESS [None]
  - INSOMNIA [None]
  - MUSCLE SPASMS [None]
  - MUSCLE TWITCHING [None]
  - MUSCULOSKELETAL PAIN [None]
  - NECK PAIN [None]
  - NERVOUS SYSTEM DISORDER [None]
  - OEDEMA PERIPHERAL [None]
  - PAIN [None]
  - POSTNASAL DRIP [None]
  - SWELLING [None]
  - TREMOR [None]
  - VISION BLURRED [None]
